FAERS Safety Report 11357563 (Version 1)
Quarter: 2015Q3

REPORT INFORMATION
  Report Type: Spontaneous
  Country: US (occurrence: US)
  Receive Date: 20150803
  Receipt Date: 20150803
  Transmission Date: 20151125
  Serious: No
  Sender: FDA-Public Use
  Company Number: US-ELI_LILLY_AND_COMPANY-US201104004554

PATIENT
  Sex: Female

DRUGS (1)
  1. ZYPREXA [Suspect]
     Active Substance: OLANZAPINE
     Indication: PAIN IN EXTREMITY
     Dosage: UNK UNK, UNKNOWN
     Route: 065

REACTIONS (20)
  - Eyelid disorder [Unknown]
  - Dyskinesia [Not Recovered/Not Resolved]
  - Headache [Unknown]
  - Dystonia [Unknown]
  - Feeling hot [Not Recovered/Not Resolved]
  - Amnesia [Not Recovered/Not Resolved]
  - Gastric dilatation [Not Recovered/Not Resolved]
  - Emotional poverty [Unknown]
  - Pain [Unknown]
  - Dyspnoea [Unknown]
  - Mental impairment [Not Recovered/Not Resolved]
  - Condition aggravated [Not Recovered/Not Resolved]
  - Speech disorder [Not Recovered/Not Resolved]
  - Movement disorder [Not Recovered/Not Resolved]
  - Musculoskeletal discomfort [Not Recovered/Not Resolved]
  - Off label use [Recovered/Resolved]
  - Vision blurred [Unknown]
  - Pain in extremity [Unknown]
  - Lip disorder [Unknown]
  - Tardive dyskinesia [Not Recovered/Not Resolved]
